FAERS Safety Report 9748932 (Version 2)
Quarter: 2013Q4

REPORT INFORMATION
  Report Type: Spontaneous
  Country: US (occurrence: US)
  Receive Date: 20131212
  Receipt Date: 20131212
  Transmission Date: 20140711
  Serious: No
  Sender: FDA-Public Use
  Company Number: US-INCYTE CORPORATION-2013IN001921

PATIENT
  Age: 60 Year
  Sex: Male

DRUGS (16)
  1. JAKAFI [Suspect]
     Indication: MYELOFIBROSIS
     Dosage: 20 MG, BID
     Route: 048
     Dates: start: 201202
  2. JAKAFI [Suspect]
     Dosage: 25 MG, BID
     Route: 048
  3. ADVAIR [Concomitant]
  4. ALLOPURINOL [Concomitant]
  5. AMLODIPINE [Concomitant]
  6. ASPIRIN [Concomitant]
  7. ATORVASTATIN [Concomitant]
  8. BYSTOLIC [Concomitant]
  9. COLCRYS [Concomitant]
  10. FUROSEMIDE [Concomitant]
  11. LISINOPRIL [Concomitant]
  12. LOVAZZA [Concomitant]
  13. PLAVIX [Concomitant]
  14. SPIRIVA [Concomitant]
  15. SYNTHROID [Concomitant]
  16. VENTOLIN [Concomitant]

REACTIONS (3)
  - Diarrhoea [Not Recovered/Not Resolved]
  - Weight decreased [Not Recovered/Not Resolved]
  - Anaemia [Not Recovered/Not Resolved]
